FAERS Safety Report 10155805 (Version 2)
Quarter: 2014Q2

REPORT INFORMATION
  Report Type: Spontaneous
  Country: US (occurrence: US)
  Receive Date: 20140506
  Receipt Date: 20140506
  Transmission Date: 20141212
  Serious: No
  Sender: FDA-Public Use
  Company Number: US-ASTRAZENECA-2014SE09932

PATIENT
  Age: 76 Year
  Sex: Female
  Weight: 99.8 kg

DRUGS (15)
  1. SYMBICORT [Suspect]
     Indication: ASTHMA
     Dosage: 160/4.5 MCG, TWO PUFFS TWO TIMES A DAY
     Route: 055
     Dates: start: 20140127
  2. OMEPRAZOLE [Suspect]
     Indication: GASTROOESOPHAGEAL REFLUX DISEASE
     Dosage: TWO UNITS DAILY
     Route: 048
  3. METOPROLOL TARTRATE [Suspect]
     Route: 048
  4. SIMVASTATIN [Concomitant]
     Indication: BLOOD CHOLESTEROL ABNORMAL
     Route: 048
  5. LEVOTHYROXINE [Concomitant]
     Indication: THYROID DISORDER
     Route: 048
  6. BUPROPION HCL [Concomitant]
     Indication: DEPRESSION
     Route: 048
  7. CITALOPRAM HBR [Concomitant]
     Indication: DEPRESSION
     Route: 048
  8. RANITIDINE [Concomitant]
     Indication: GASTROOESOPHAGEAL REFLUX DISEASE
     Dosage: 2 DAILY
     Route: 048
  9. SODIUM BICARBONATE [Concomitant]
     Indication: DYSPEPSIA
     Dosage: 2 DAILY
     Route: 048
  10. PENNSAID [Concomitant]
     Indication: ARTHRITIS
     Dosage: NOT REPORTED NR
     Route: 061
  11. BAYER LOW DOSE ASPIRIN [Concomitant]
     Indication: CARDIAC DISORDER
     Dosage: 1 DAILY
     Route: 048
  12. VITAMIN D [Concomitant]
     Indication: RENAL DISORDER
     Route: 048
  13. TUMS [Concomitant]
     Indication: MINERAL SUPPLEMENTATION
     Dosage: 4 DAILY
     Route: 048
  14. OCUVITE [Concomitant]
     Indication: EYE DISORDER
     Dosage: NOT REPORTED DAILY
     Route: 048
  15. AMITIZA [Concomitant]
     Indication: LAXATIVE SUPPORTIVE CARE
     Dosage: NOT REPORTED PRN
     Route: 048

REACTIONS (2)
  - Gait disturbance [Not Recovered/Not Resolved]
  - Circumstance or information capable of leading to medication error [Unknown]
